FAERS Safety Report 6907318-9 (Version None)
Quarter: 2010Q3

REPORT INFORMATION
  Report Type: 
  Country: None (occurrence: None)
  Receive Date: 20100730
  Receipt Date: 20100721
  Transmission Date: 20110219
  Serious: Yes (Hospitalization, Other)
  Sender: FDA-Public Use
  Company Number: 2010SP031284

PATIENT
  Age: 32 Year
  Sex: Female
  Weight: 79.3795 kg

DRUGS (1)
  1. NUVARING [Suspect]
     Indication: CONTRACEPTION
     Dosage: VAG
     Route: 067
     Dates: start: 20080528, end: 20080601

REACTIONS (18)
  - ANXIETY [None]
  - ATELECTASIS [None]
  - DELIRIUM [None]
  - DRUG INEFFECTIVE [None]
  - EPISTAXIS [None]
  - HAEMOPTYSIS [None]
  - HEADACHE [None]
  - HYPOAESTHESIA [None]
  - LIVER FUNCTION TEST ABNORMAL [None]
  - NERVOUS SYSTEM DISORDER [None]
  - PLEURAL EFFUSION [None]
  - POST-TRAUMATIC STRESS DISORDER [None]
  - PULMONARY CONGESTION [None]
  - PULMONARY EMBOLISM [None]
  - PULMONARY INFARCTION [None]
  - RAYNAUD'S PHENOMENON [None]
  - SINUS TACHYCARDIA [None]
  - SOMNOLENCE [None]
